FAERS Safety Report 7936353-7 (Version None)
Quarter: 2011Q4

REPORT INFORMATION
  Report Type: 
  Country: None (occurrence: None)
  Receive Date: 20111123
  Receipt Date: 20111115
  Transmission Date: 20120403
  Serious: Yes (Other)
  Sender: FDA-Public Use
  Company Number: US-PURDUE-USA-2011-0076115

PATIENT
  Age: 55 Year
  Sex: Male
  Weight: 124.72 kg

DRUGS (3)
  1. OXYCONTIN [Suspect]
     Indication: BACK PAIN
     Dosage: 80 MG, TID
  2. OXYCONTIN [Suspect]
     Dosage: 40 MG, TID
  3. OXYCODONE HCL [Concomitant]
     Indication: BREAKTHROUGH PAIN
     Dosage: 10 MG, TID

REACTIONS (12)
  - DRUG DEPENDENCE [None]
  - DRUG WITHDRAWAL SYNDROME [None]
  - MALAISE [None]
  - FEELING ABNORMAL [None]
  - ARTHRITIS [None]
  - DISCOMFORT [None]
  - BLOOD PRESSURE INCREASED [None]
  - RADICULOTOMY [None]
  - INFLUENZA LIKE ILLNESS [None]
  - TREMOR [None]
  - PAIN [None]
  - DRUG EFFECT DECREASED [None]
